FAERS Safety Report 14093388 (Version 1)
Quarter: 2017Q4

REPORT INFORMATION
  Report Type: Spontaneous
  Country: US (occurrence: US)
  Receive Date: 20171016
  Receipt Date: 20171016
  Transmission Date: 20180321
  Serious: No
  Sender: FDA-Public Use
  Company Number: None

PATIENT
  Age: 79 Year
  Sex: Female

DRUGS (2)
  1. BETHANECHOL [Suspect]
     Active Substance: BETHANECHOL
     Route: 048
     Dates: start: 20170805, end: 20171015
  2. BETHANECHOL [Suspect]
     Active Substance: BETHANECHOL
     Route: 048
     Dates: start: 20170805, end: 20171015

REACTIONS (1)
  - Pruritus [None]

NARRATIVE: CASE EVENT DATE: 20170803
